FAERS Safety Report 6300935-9 (Version None)
Quarter: 2009Q3

REPORT INFORMATION
  Report Type: 
  Country: None (occurrence: None)
  Receive Date: 20090807
  Receipt Date: 20090804
  Transmission Date: 20100115
  Serious: Yes (Death)
  Sender: FDA-Public Use
  Company Number: JP-JNJFOC-20090801720

PATIENT
  Sex: Male
  Weight: 56 kg

DRUGS (14)
  1. DUROTEP MT PATCH [Suspect]
     Route: 062
  2. DUROTEP MT PATCH [Suspect]
     Indication: CANCER PAIN
     Route: 062
  3. RISPERDAL [Concomitant]
     Route: 048
  4. RISPERDAL [Concomitant]
     Indication: RESTLESSNESS
     Route: 048
  5. OXYCONTIN [Concomitant]
     Indication: CANCER PAIN
     Route: 048
  6. NAPROXEN [Concomitant]
     Route: 048
  7. MOBIC [Concomitant]
     Indication: ANALGESIC THERAPY
     Route: 048
  8. OMEPRAL [Concomitant]
     Indication: PROPHYLAXIS
     Route: 048
  9. AMARYL [Concomitant]
     Indication: DIABETES MELLITUS
     Route: 048
  10. DEXAMETHASONE [Concomitant]
     Route: 048
  11. SOLANAX [Concomitant]
     Indication: RESTLESSNESS
     Route: 048
  12. NOVAMIN [Concomitant]
     Indication: PROPHYLAXIS
     Route: 048
  13. MAGMITT [Concomitant]
     Indication: PROPHYLAXIS
     Route: 048
  14. LIPITOR [Concomitant]
     Indication: HYPERLIPIDAEMIA
     Route: 048

REACTIONS (3)
  - LUNG NEOPLASM MALIGNANT [None]
  - MALIGNANT NEOPLASM PROGRESSION [None]
  - WRONG TECHNIQUE IN DRUG USAGE PROCESS [None]
